FAERS Safety Report 19468805 (Version 5)
Quarter: 2021Q4

REPORT INFORMATION
  Report Type: Report from Study
  Country: SG (occurrence: SG)
  Receive Date: 20210628
  Receipt Date: 20211117
  Transmission Date: 20220303
  Serious: Yes (Other)
  Sender: FDA-Public Use
  Company Number: NVSC2021SG138784

PATIENT
  Age: 70 Year
  Sex: Male

DRUGS (4)
  1. CAPMATINIB [Suspect]
     Active Substance: CAPMATINIB
     Indication: Adenocarcinoma
     Dosage: 400 MG, BID
     Route: 048
     Dates: start: 20210401, end: 20210517
  2. CAPMATINIB [Suspect]
     Active Substance: CAPMATINIB
     Indication: Non-small cell lung cancer
     Dosage: 200 MG, BID
     Route: 065
     Dates: start: 20210527, end: 20210602
  3. CAPMATINIB [Suspect]
     Active Substance: CAPMATINIB
     Dosage: 200 MG, BID
     Route: 065
     Dates: start: 20210623
  4. CAPMATINIB [Suspect]
     Active Substance: CAPMATINIB
     Dosage: 300 MG, BID
     Route: 065
     Dates: start: 20210727

REACTIONS (8)
  - Transaminases increased [Recovered/Resolved]
  - Fatigue [Unknown]
  - Myalgia [Unknown]
  - Peripheral swelling [Unknown]
  - Blood albumin decreased [Unknown]
  - Protein total decreased [Unknown]
  - Blood bilirubin increased [Unknown]
  - Therapy partial responder [Unknown]

NARRATIVE: CASE EVENT DATE: 20210401
